APPROVED DRUG PRODUCT: METOCLOPRAMIDE HYDROCHLORIDE
Active Ingredient: METOCLOPRAMIDE HYDROCHLORIDE
Strength: EQ 5MG BASE/ML
Dosage Form/Route: INJECTABLE;INJECTION
Application: A070847 | Product #001
Applicant: HOSPIRA INC
Approved: Nov 7, 1988 | RLD: No | RS: No | Type: DISCN